FAERS Safety Report 8128270-7 (Version None)
Quarter: 2012Q1

REPORT INFORMATION
  Report Type: 
  Country: None (occurrence: None)
  Receive Date: 20120210
  Receipt Date: 20120207
  Transmission Date: 20120608
  Serious: Yes (Other)
  Sender: FDA-Public Use
  Company Number: US-ROCHE-793923

PATIENT
  Sex: Male
  Weight: 72.64 kg

DRUGS (1)
  1. ACCUTANE [Suspect]
     Indication: ACNE
     Dosage: PATIENT IGESTED ACCUTANE FOR SIX MONTHS DURING 1990.
     Route: 065

REACTIONS (3)
  - INFLAMMATORY BOWEL DISEASE [None]
  - EMOTIONAL DISTRESS [None]
  - IRRITABLE BOWEL SYNDROME [None]
